FAERS Safety Report 18090987 (Version 1)
Quarter: 2020Q3

REPORT INFORMATION
  Report Type: Spontaneous
  Country: US (occurrence: US)
  Receive Date: 20200729
  Receipt Date: 20200729
  Transmission Date: 20201103
  Serious: No
  Sender: FDA-Public Use
  Company Number: None

PATIENT
  Age: 35 Year
  Sex: Male
  Weight: 82.35 kg

DRUGS (8)
  1. ALLERGY INJECTIONS [Concomitant]
  2. CALTRATE COMPLETE [Concomitant]
  3. NEXIUM XR [Concomitant]
  4. VITAMIN D [Concomitant]
     Active Substance: VITAMIN D NOS
  5. MULTIVITAMIN [Concomitant]
     Active Substance: VITAMINS
  6. FLONASE SENSIMIST ALLERGY RELIEF [Suspect]
     Active Substance: FLUTICASONE FUROATE
     Indication: SEASONAL ALLERGY
     Dosage: ?          QUANTITY:2 SPRAY(S);?
     Route: 055
  7. ADDERALL [Concomitant]
     Active Substance: AMPHETAMINE ASPARTATE\AMPHETAMINE SULFATE\DEXTROAMPHETAMINE SACCHARATE\DEXTROAMPHETAMINE SULFATE
  8. CLONADINE [Concomitant]

REACTIONS (1)
  - Eye irritation [None]

NARRATIVE: CASE EVENT DATE: 20200729
